FAERS Safety Report 9741800 (Version 3)
Quarter: 2014Q1

REPORT INFORMATION
  Report Type: Report from Study
  Country: US (occurrence: US)
  Receive Date: 20131210
  Receipt Date: 20140206
  Transmission Date: 20141002
  Serious: Yes (Hospitalization)
  Sender: FDA-Public Use
  Company Number: US-ROCHE-1061709

PATIENT
  Age: 71 Year
  Sex: Female
  Weight: 54.4 kg

DRUGS (34)
  1. OBINUTUZUMAB [Suspect]
     Indication: DIFFUSE LARGE B-CELL LYMPHOMA
     Dosage: MOST RECENT DOSE ON 11/MAY/2012, LAST DOSE TAKEN: 1000 MG
     Route: 042
     Dates: start: 20120312
  2. PREDNISONE [Suspect]
     Indication: DIFFUSE LARGE B-CELL LYMPHOMA
     Dosage: MOST RECENT DOSE ON 11/MAY/2012, LAST DOSE TAKEN: 100 MG
     Route: 048
     Dates: start: 20120312
  3. CYCLOPHOSPHAMIDE [Suspect]
     Indication: DIFFUSE LARGE B-CELL LYMPHOMA
     Dosage: DATE OF MOST RECENT DOSE 04/APR/2012, LAST DOSE TAKEN: 1283 MG
     Route: 042
     Dates: start: 20120313
  4. CYCLOPHOSPHAMIDE [Suspect]
     Dosage: DOSE REDUCED
     Route: 042
  5. DOXORUBICIN [Suspect]
     Indication: DIFFUSE LARGE B-CELL LYMPHOMA
     Dosage: DATE OF MOST RECENT DOSE 04/APR/2012, LAST DOSE TAKEN: 820 MG
     Route: 042
     Dates: start: 20120313
  6. DOXORUBICIN [Suspect]
     Dosage: DOSE REDUCED
     Route: 042
  7. VINCRISTINE [Suspect]
     Indication: DIFFUSE LARGE B-CELL LYMPHOMA
     Dosage: DATE OF MOST RECENT DOSE 04/APR/2012, LAST DOSE TAKEN: 2 MG
     Route: 042
     Dates: start: 20120313
  8. CIPRO [Suspect]
     Indication: URINARY TRACT INFECTION
     Route: 065
     Dates: start: 20120328, end: 20120404
  9. ASPIRIN [Concomitant]
     Indication: PROPHYLAXIS
     Route: 065
     Dates: start: 20080226
  10. COZAAR [Concomitant]
     Indication: HYPERTENSION
     Route: 065
     Dates: start: 20100528
  11. EXELON [Concomitant]
     Indication: COGNITIVE DISORDER
     Route: 065
     Dates: start: 2010
  12. CLONAZEPAM [Concomitant]
     Indication: MUSCLE SPASMS
     Route: 065
     Dates: start: 2010
  13. HCTZ [Concomitant]
     Indication: HYPERTENSION
     Route: 065
     Dates: start: 2010
  14. LEVOTHYROXINE [Concomitant]
     Indication: HYPOTHYROIDISM
  15. LOSARTAN [Concomitant]
     Indication: HYPERTENSION
     Route: 065
     Dates: start: 2010
  16. PRILOSEC [Concomitant]
     Indication: PROPHYLAXIS
     Route: 065
     Dates: start: 2010
  17. SINEMET [Concomitant]
     Indication: PARKINSON^S DISEASE
     Route: 065
     Dates: start: 2010
  18. TYLENOL [Concomitant]
     Indication: PREMEDICATION
     Route: 065
     Dates: start: 20120328, end: 20120328
  19. TYLENOL [Concomitant]
     Route: 065
     Dates: start: 20120404, end: 20120404
  20. TYLENOL [Concomitant]
     Route: 065
     Dates: start: 20120502, end: 20120502
  21. BENADRYL (UNITED STATES) [Concomitant]
     Indication: PREMEDICATION
     Route: 065
     Dates: start: 20120328, end: 20120328
  22. BENADRYL (UNITED STATES) [Concomitant]
     Route: 065
     Dates: start: 20120404, end: 20120404
  23. BENADRYL (UNITED STATES) [Concomitant]
     Route: 065
     Dates: start: 20120502, end: 20120502
  24. ZOFRAN [Concomitant]
     Indication: PREMEDICATION
     Route: 065
     Dates: start: 20120404, end: 20120404
  25. ZOFRAN [Concomitant]
     Route: 065
     Dates: start: 20120502, end: 20120502
  26. HYDROCORTISONE [Concomitant]
     Route: 065
     Dates: start: 20120328, end: 20120328
  27. ZANTAC [Concomitant]
     Indication: PROPHYLAXIS
     Route: 065
     Dates: start: 201204
  28. ZANTAC [Concomitant]
     Route: 065
     Dates: start: 20120514, end: 20120514
  29. FENTANYL PATCH [Concomitant]
     Indication: BACK PAIN
  30. MAJIC MOUTHWASH (NYSTATIN, BENADRYL, HYDROCORTISONE) [Concomitant]
     Indication: MOUTH ULCERATION
     Route: 065
     Dates: start: 20120404, end: 20120415
  31. ZOLOFT [Concomitant]
     Indication: ANXIETY
     Route: 065
     Dates: start: 20110919
  32. FLAGYL [Concomitant]
     Route: 065
     Dates: start: 201204, end: 201204
  33. DOXICYCLIN [Concomitant]
     Indication: URINARY TRACT INFECTION
     Route: 065
     Dates: start: 20120515, end: 201205
  34. XYZAL [Concomitant]
     Indication: SEASONAL ALLERGY
     Route: 065
     Dates: start: 20110919

REACTIONS (2)
  - Diarrhoea [Recovered/Resolved]
  - Diarrhoea [Recovered/Resolved]
